FAERS Safety Report 4279028-0 (Version None)
Quarter: 2004Q1

REPORT INFORMATION
  Report Type: 
  Country: None (occurrence: None)
  Receive Date: 20040122
  Receipt Date: 20031223
  Transmission Date: 20041129
  Serious: Yes (Other)
  Sender: FDA-Public Use
  Company Number: US_040199652

PATIENT
  Age: 9 Year
  Sex: Male

DRUGS (1)
  1. STRATTERA [Suspect]
     Indication: ATTENTION DEFICIT/HYPERACTIVITY DISORDER
     Dates: start: 20030801, end: 20031101

REACTIONS (4)
  - CARDIOMEGALY [None]
  - CARDIOMYOPATHY [None]
  - CHEST DISCOMFORT [None]
  - VENTRICULAR DYSFUNCTION [None]
